FAERS Safety Report 8557489-6 (Version None)
Quarter: 2012Q3

REPORT INFORMATION
  Report Type: 
  Country: None (occurrence: None)
  Receive Date: 20120725
  Receipt Date: 20120725
  Transmission Date: 20120928
  Serious: Yes (Other)
  Sender: FDA-Public Use
  Company Number: None

PATIENT
  Sex: Female
  Weight: 81.8 kg

DRUGS (1)
  1. PRAVASTATIN SODIUM [Suspect]
     Indication: BLOOD CHOLESTEROL INCREASED
     Dosage: 40 MG ONE PER DAY ORAL 047
     Route: 048
     Dates: start: 20120407, end: 20120523

REACTIONS (4)
  - ANXIETY [None]
  - SLEEP DISORDER [None]
  - MAJOR DEPRESSION [None]
  - DISTURBANCE IN ATTENTION [None]
